FAERS Safety Report 9379288 (Version 1)
Quarter: 2013Q2

REPORT INFORMATION
  Report Type: Spontaneous
  Country: IT (occurrence: None)
  Receive Date: 20130405
  Receipt Date: 20130405
  Transmission Date: 20140414
  Serious: Yes (Death, Hospitalization)
  Sender: FDA-Public Use
  Company Number: IT-CLINIGEN HEALTHCARE LIMITED-003025

PATIENT
  Age: 20 Year
  Sex: Male

DRUGS (3)
  1. FOSCAVIR (FOSCAVIR) [Suspect]
     Indication: PNEUMONIA CYTOMEGALOVIRAL
     Route: 042
     Dates: start: 20130115
  2. LINEZOLID [Suspect]
  3. ANTIBIOTICS [Suspect]

REACTIONS (2)
  - Graft versus host disease [None]
  - Pneumonia cytomegaloviral [None]
